FAERS Safety Report 11223293 (Version 3)
Quarter: 2017Q1

REPORT INFORMATION
  Report Type: Report from Study
  Country: JP (occurrence: JP)
  Receive Date: 20150626
  Receipt Date: 20170221
  Transmission Date: 20170428
  Serious: Yes (Hospitalization, Other)
  Sender: FDA-Public Use
  Company Number: JP-BRISTOL-MYERS SQUIBB COMPANY-20948881

PATIENT
  Age: 65 Year
  Sex: Female
  Weight: 58 kg

DRUGS (5)
  1. MAGMITT [Concomitant]
     Active Substance: MAGNESIUM OXIDE
     Indication: PRODUCT USED FOR UNKNOWN INDICATION
     Dosage: 330 MG, QD
     Route: 048
  2. CYLOCIDE [Concomitant]
     Active Substance: CYTARABINE
     Indication: ADVERSE EVENT
     Dosage: 40 MG, QD
     Route: 037
     Dates: start: 20130905, end: 20130926
  3. DASATINIB [Suspect]
     Active Substance: DASATINIB
     Indication: PHILADELPHIA CHROMOSOME POSITIVE
     Route: 065
  4. DASATINIB [Suspect]
     Active Substance: DASATINIB
     Indication: ACUTE LYMPHOCYTIC LEUKAEMIA
     Dosage: ONGOING
     Route: 048
     Dates: start: 20130225
  5. METHOTREXATE. [Concomitant]
     Active Substance: METHOTREXATE
     Indication: ADVERSE EVENT
     Dosage: 15 MG, QD
     Route: 037
     Dates: start: 20130905, end: 20130923

REACTIONS (3)
  - Malaise [Unknown]
  - Glaucoma [Unknown]
  - Optic neuritis [Recovering/Resolving]

NARRATIVE: CASE EVENT DATE: 20130830
